FAERS Safety Report 15814027 (Version 1)
Quarter: 2019Q1

REPORT INFORMATION
  Report Type: Spontaneous
  Country: US (occurrence: US)
  Receive Date: 20190111
  Receipt Date: 20190111
  Transmission Date: 20190417
  Serious: No
  Sender: FDA-Public Use
  Company Number: US-RISING PHARMACEUTICALS, INC.-2018RIS00091

PATIENT
  Sex: Female

DRUGS (1)
  1. CIPROFLOXACIN. [Suspect]
     Active Substance: CIPROFLOXACIN
     Dosage: UNK
     Route: 047
     Dates: end: 201802

REACTIONS (3)
  - Eye inflammation [Not Recovered/Not Resolved]
  - Eye irritation [Not Recovered/Not Resolved]
  - Product quality issue [Recovered/Resolved]
